FAERS Safety Report 11744946 (Version 4)
Quarter: 2016Q2

REPORT INFORMATION
  Report Type: Report from Study
  Country: BR (occurrence: BR)
  Receive Date: 20151117
  Receipt Date: 20160610
  Transmission Date: 20160815
  Serious: Yes (Death, Life-Threatening, Hospitalization, Other)
  Sender: FDA-Public Use
  Company Number: BR-ALEXION PHARMACEUTICALS INC-A201504500

PATIENT
  Age: 2 Month
  Sex: Male
  Weight: 2.6 kg

DRUGS (15)
  1. VANCOMYCIN [Concomitant]
     Active Substance: VANCOMYCIN
     Indication: CANDIDA SEPSIS
  2. MICAFUNGIN [Concomitant]
     Active Substance: MICAFUNGIN
     Indication: STAPHYLOCOCCAL INFECTION
  3. MICAFUNGIN [Concomitant]
     Active Substance: MICAFUNGIN
     Indication: CANDIDA SEPSIS
  4. MEROPENEM. [Concomitant]
     Active Substance: MEROPENEM
     Indication: STAPHYLOCOCCAL INFECTION
     Dosage: UNK
     Route: 042
     Dates: start: 20151108
  5. MEROPENEM. [Concomitant]
     Active Substance: MEROPENEM
     Indication: CANDIDA SEPSIS
  6. AMPHOTERICIN B, LIPOSOME [Concomitant]
     Active Substance: AMPHOTERICIN B
     Indication: PERITONITIS
     Dosage: UNK
     Route: 065
     Dates: start: 20150922, end: 20151010
  7. VANCOMYCIN [Concomitant]
     Active Substance: VANCOMYCIN
     Indication: PERITONITIS
     Dosage: UNK
     Route: 042
     Dates: start: 20151108
  8. AMPHOTERICIN B, LIPOSOME [Concomitant]
     Active Substance: AMPHOTERICIN B
     Indication: STAPHYLOCOCCAL INFECTION
  9. AMPHOTERICIN B, LIPOSOME [Concomitant]
     Active Substance: AMPHOTERICIN B
     Indication: CANDIDA SEPSIS
  10. MEROPENEM. [Concomitant]
     Active Substance: MEROPENEM
     Indication: INFECTION
     Dosage: UNK
     Route: 065
     Dates: start: 20150922, end: 20150928
  11. SOLIRIS [Suspect]
     Active Substance: ECULIZUMAB
     Indication: HAEMOLYTIC URAEMIC SYNDROME
     Dosage: 300 MG, UNK
     Route: 042
     Dates: start: 20151105
  12. VANCOMYCIN [Concomitant]
     Active Substance: VANCOMYCIN
     Indication: INFECTION
     Dosage: UNK
     Route: 065
     Dates: start: 20150922, end: 20151007
  13. VANCOMYCIN [Concomitant]
     Active Substance: VANCOMYCIN
     Indication: STAPHYLOCOCCAL INFECTION
  14. MICAFUNGIN [Concomitant]
     Active Substance: MICAFUNGIN
     Indication: PERITONITIS
     Dosage: UNK
     Route: 065
     Dates: start: 20150922, end: 20151010
  15. MEROPENEM. [Concomitant]
     Active Substance: MEROPENEM
     Indication: PERITONITIS

REACTIONS (9)
  - Anaemia [Fatal]
  - Pulmonary haemorrhage [Recovered/Resolved]
  - Cardiac failure [Unknown]
  - Mitral valve incompetence [Unknown]
  - Cardiac arrest [Fatal]
  - Infection [Not Recovered/Not Resolved]
  - Gastrointestinal haemorrhage [Recovered/Resolved]
  - Blood urea abnormal [Unknown]
  - Thrombocytopenia [Not Recovered/Not Resolved]

NARRATIVE: CASE EVENT DATE: 20151108
